FAERS Safety Report 14174370 (Version 5)
Quarter: 2018Q1

REPORT INFORMATION
  Report Type: Spontaneous
  Country: US (occurrence: US)
  Receive Date: 20171109
  Receipt Date: 20180219
  Transmission Date: 20180508
  Serious: No
  Sender: FDA-Public Use
  Company Number: US-TEVA-810275ACC

PATIENT
  Sex: Female

DRUGS (1)
  1. OLMESARTAN [Suspect]
     Active Substance: OLMESARTAN
     Indication: HYPERTENSION
     Dates: start: 20170823, end: 20170920

REACTIONS (8)
  - Palpitations [Recovered/Resolved]
  - Drug ineffective [Unknown]
  - Headache [Recovered/Resolved]
  - Anxiety [Recovered/Resolved]
  - Swelling [Recovered/Resolved]
  - Hypertension [Recovered/Resolved]
  - Irritability [Recovered/Resolved]
  - Product substitution issue [Recovering/Resolving]

NARRATIVE: CASE EVENT DATE: 20170823
